FAERS Safety Report 8621984-1 (Version None)
Quarter: 2012Q3

REPORT INFORMATION
  Report Type: 
  Country: None (occurrence: None)
  Receive Date: 20120823
  Receipt Date: 20120823
  Transmission Date: 20120928
  Serious: Yes (Other)
  Sender: FDA-Public Use
  Company Number: None

PATIENT
  Age: 98 Year
  Sex: Male
  Weight: 81.5 kg

DRUGS (2)
  1. FLORINEF [Suspect]
     Dosage: 0.1MG ONCE DAILY PO
     Route: 048
  2. MIDODRINE HYDROCHLORIDE [Suspect]
     Dosage: 10MG THREE TIMES DAILY PO
     Route: 048

REACTIONS (2)
  - HYPERTENSION [None]
  - SWELLING [None]
